FAERS Safety Report 8500055-9 (Version None)
Quarter: 2012Q3

REPORT INFORMATION
  Report Type: 
  Country: None (occurrence: None)
  Receive Date: 20120710
  Receipt Date: 20120703
  Transmission Date: 20120928
  Serious: Yes (Hospitalization)
  Sender: FDA-Public Use
  Company Number: US-BAYER-2012-067387

PATIENT
  Age: 19 Year
  Sex: Female
  Weight: 83.91 kg

DRUGS (3)
  1. BEYAZ [Suspect]
     Dosage: UNK
     Dates: start: 20110201
  2. LOESTRIN FE 1/20 [Concomitant]
     Dosage: 1MG-10MCG/10MCG
     Route: 048
  3. YAZ [Suspect]
     Dosage: UNK
     Dates: start: 20090801, end: 20100501

REACTIONS (3)
  - INTRACRANIAL VENOUS SINUS THROMBOSIS [None]
  - VENOUS THROMBOSIS [None]
  - JUGULAR VEIN THROMBOSIS [None]
